FAERS Safety Report 8929315 (Version 1)
Quarter: 2012Q4

REPORT INFORMATION
  Report Type: Spontaneous
  Country: DE (occurrence: None)
  Receive Date: 20121119
  Receipt Date: 20121119
  Transmission Date: 20130627
  Serious: Yes (Hospitalization)
  Sender: FDA-Public Use
  Company Number: FK201203393

PATIENT
  Age: 35 Year
  Sex: Male

DRUGS (1)
  1. PROPOFOL [Suspect]
     Indication: OCCUPATIONAL EXPOSURE TO DRUG
     Route: 055

REACTIONS (4)
  - Diaphragmatic paralysis [None]
  - Left ventricular dysfunction [None]
  - Dyspnoea [None]
  - Occupational exposure to product [None]
